FAERS Safety Report 22000561 (Version 1)
Quarter: 2023Q1

REPORT INFORMATION
  Report Type: Spontaneous
  Country: US (occurrence: None)
  Receive Date: 20230215
  Receipt Date: 20230215
  Transmission Date: 20230417
  Serious: No
  Sender: FDA-Public Use
  Company Number: None

PATIENT
  Age: 8 Year
  Sex: Male

DRUGS (1)
  1. RITALIN LA [Suspect]
     Active Substance: METHYLPHENIDATE HYDROCHLORIDE

REACTIONS (4)
  - Disruptive mood dysregulation disorder [None]
  - Disturbance in attention [None]
  - Cognitive disorder [None]
  - Depressed mood [None]

NARRATIVE: CASE EVENT DATE: 20230215
